FAERS Safety Report 12578661 (Version 1)
Quarter: 2016Q3

REPORT INFORMATION
  Report Type: Spontaneous
  Country: US (occurrence: US)
  Receive Date: 20160721
  Receipt Date: 20160721
  Transmission Date: 20161109
  Serious: No
  Sender: FDA-Public Use
  Company Number: US-PFIZER INC-2016340106

PATIENT
  Age: 55 Year
  Sex: Female

DRUGS (1)
  1. EFFEXOR [Suspect]
     Active Substance: VENLAFAXINE HYDROCHLORIDE
     Dosage: UNK

REACTIONS (6)
  - Fatigue [Unknown]
  - Diarrhoea [Unknown]
  - Cerebral disorder [Unknown]
  - Vomiting [Unknown]
  - Anxiety [Unknown]
  - Nausea [Unknown]
